FAERS Safety Report 5567574-9 (Version None)
Quarter: 2007Q4

REPORT INFORMATION
  Report Type: 
  Country: None (occurrence: None)
  Receive Date: 20071219
  Receipt Date: 20071212
  Transmission Date: 20080405
  Serious: Yes (Other)
  Sender: FDA-Public Use
  Company Number: TW-PFIZER INC-2007103280

PATIENT
  Age: 73 Year
  Sex: Female

DRUGS (1)
  1. HYDROXYZINE HYDROCHLORIDE [Suspect]
     Indication: PSORIASIS

REACTIONS (2)
  - ACUTE GENERALISED EXANTHEMATOUS PUSTULOSIS [None]
  - DRUG ERUPTION [None]
